FAERS Safety Report 5860168-7 (Version None)
Quarter: 2008Q3

REPORT INFORMATION
  Report Type: 
  Country: None (occurrence: None)
  Receive Date: 20080827
  Receipt Date: 20080818
  Transmission Date: 20090109
  Serious: Yes (Hospitalization)
  Sender: FDA-Public Use
  Company Number: CN-ASTRAZENECA-2008AP05694

PATIENT
  Age: 78 Year
  Sex: Male

DRUGS (6)
  1. OMEPRAZOLE [Suspect]
     Indication: GASTRITIS
     Route: 048
  2. OMEPRAZOLE [Suspect]
     Indication: OESOPHAGITIS
     Route: 048
  3. OMEPRAZOLE [Suspect]
     Route: 048
  4. OMEPRAZOLE [Suspect]
     Route: 048
  5. OMEPRAZOLE [Suspect]
     Route: 048
  6. OMEPRAZOLE [Suspect]
     Route: 048

REACTIONS (4)
  - ALTERED STATE OF CONSCIOUSNESS [None]
  - ATAXIA [None]
  - DIZZINESS [None]
  - SOMNOLENCE [None]
